FAERS Safety Report 6249237-X (Version None)
Quarter: 2009Q2

REPORT INFORMATION
  Report Type: 
  Country: None (occurrence: None)
  Receive Date: 20090629
  Receipt Date: 20090622
  Transmission Date: 20091009
  Serious: Yes (Other)
  Sender: FDA-Public Use
  Company Number: GB-MERCK-0906GBR00093

PATIENT
  Age: 72 Year
  Sex: Female

DRUGS (9)
  1. ZOCOR [Suspect]
     Indication: BLOOD CHOLESTEROL ABNORMAL
     Route: 048
     Dates: start: 20090311, end: 20090312
  2. CLARITHROMYCIN [Concomitant]
     Route: 065
     Dates: start: 20090219
  3. ACETAMINOPHEN AND CODEINE PHOSPHATE [Concomitant]
     Route: 065
     Dates: start: 20090107
  4. FUROSEMIDE [Concomitant]
     Indication: FLUID RETENTION
     Route: 065
     Dates: start: 20061004
  5. LEVOTHYROXINE SODIUM [Concomitant]
     Indication: HYPOTHYROIDISM
     Route: 048
     Dates: start: 20050825
  6. ACETAMINOPHEN [Concomitant]
     Indication: PAIN
     Route: 048
     Dates: start: 20050110
  7. ALBUTEROL [Concomitant]
  8. TIOTROPIUM BROMIDE [Concomitant]
  9. WARFARIN [Concomitant]
     Indication: ATRIAL FIBRILLATION
     Route: 048
     Dates: start: 20040826

REACTIONS (1)
  - GOUT [None]
